FAERS Safety Report 11516493 (Version 1)
Quarter: 2015Q3

REPORT INFORMATION
  Report Type: Spontaneous
  Country: US (occurrence: None)
  Receive Date: 20150915
  Receipt Date: 20150915
  Transmission Date: 20151125
  Serious: Yes (Other)
  Sender: FDA-Public Use
  Company Number: 001981238A

PATIENT
  Age: 67 Year
  Sex: Female

DRUGS (9)
  1. PROACTIV PLUS PORE TARGETING TREATMENT [Suspect]
     Active Substance: BENZOYL PEROXIDE
     Indication: ACNE
     Dosage: TWICE, DERMAL
     Dates: start: 20150807, end: 20150808
  2. THYROID MEDICATION [Concomitant]
     Active Substance: UNSPECIFIED INGREDIENT
  3. ALPRAZOLAM. [Concomitant]
     Active Substance: ALPRAZOLAM
  4. ALLERGY SHOT [Concomitant]
     Active Substance: UNSPECIFIED INGREDIENT
  5. SLEEPING MEDICATION [Concomitant]
     Active Substance: UNSPECIFIED INGREDIENT
  6. PROACTIVPLUS SKIN SMOOTHING EXFOLIATOR [Suspect]
     Active Substance: BENZOYL PEROXIDE
     Dosage: TWICE, DERMAL
     Dates: start: 20150807, end: 20150808
  7. PROACTIV PLUS COMPLEXION PERFECTING HYDRATOR [Suspect]
     Active Substance: SALICYLIC ACID
     Indication: ACNE
     Dosage: TWICE, DERMAL
     Dates: start: 20150807, end: 20150808
  8. PROACTIV PLUS SKIN PURIFYING MASK [Suspect]
     Active Substance: SULFUR
     Indication: ACNE
     Dosage: TWICE, DERMAL
     Dates: start: 20150807, end: 20150808
  9. INDERAL [Concomitant]
     Active Substance: PROPRANOLOL HYDROCHLORIDE

REACTIONS (7)
  - Burns second degree [None]
  - Erythema [None]
  - Skin exfoliation [None]
  - Swelling face [None]
  - Skin tightness [None]
  - Burns third degree [None]
  - Dry skin [None]

NARRATIVE: CASE EVENT DATE: 20150808
